FAERS Safety Report 9918044 (Version 2)
Quarter: 2014Q1

REPORT INFORMATION
  Report Type: Spontaneous
  Country: US (occurrence: US)
  Receive Date: 20140222
  Receipt Date: 20140311
  Transmission Date: 20141002
  Serious: Yes (Hospitalization, Other)
  Sender: FDA-Public Use
  Company Number: US-009507513-1402USA009508

PATIENT
  Age: 47 Year
  Sex: Male

DRUGS (2)
  1. DULERA [Suspect]
     Dosage: UNK
     Dates: start: 201306
  2. ADVAIR [Concomitant]
     Dosage: UNK
     Dates: end: 201306

REACTIONS (3)
  - Multiple sclerosis [Unknown]
  - Headache [Unknown]
  - Headache [Unknown]
